FAERS Safety Report 25596949 (Version 1)
Quarter: 2025Q3

REPORT INFORMATION
  Report Type: Spontaneous
  Country: US (occurrence: US)
  Receive Date: 20250723
  Receipt Date: 20250723
  Transmission Date: 20251020
  Serious: No
  Sender: ROCHE
  Company Number: US-ROCHE-10000342115

PATIENT
  Sex: Female

DRUGS (1)
  1. XOLAIR [Suspect]
     Active Substance: OMALIZUMAB
     Indication: Urticaria
     Dosage: STRENGTH: 300 MG/2ML?LAST DOSE WAS ADMINISTERED : 26-JUN-2025
     Route: 058
     Dates: start: 202410

REACTIONS (2)
  - Urticaria [Unknown]
  - Peripheral swelling [Unknown]
